FAERS Safety Report 7684357-4 (Version None)
Quarter: 2011Q3

REPORT INFORMATION
  Report Type: 
  Country: None (occurrence: None)
  Receive Date: 20110816
  Receipt Date: 20110805
  Transmission Date: 20111222
  Serious: Yes (Hospitalization)
  Sender: FDA-Public Use
  Company Number: DE-AMGEN-DEUCT2011040562

PATIENT
  Age: 54 Year
  Sex: Male
  Weight: 112 kg

DRUGS (9)
  1. CARMEN                             /01366401/ [Concomitant]
     Indication: HYPERTENSION
     Dosage: 10 MG, 2X/DAY
     Route: 048
     Dates: start: 20030101
  2. INSULIN [Concomitant]
     Indication: TYPE 2 DIABETES MELLITUS
     Dosage: AS NEEDED
     Route: 058
  3. ETANERCEPT [Suspect]
     Indication: PSORIATIC ARTHROPATHY
     Dosage: 50 MG, QWK
     Route: 058
     Dates: start: 20101115, end: 20110613
  4. METFORMIN HCL [Concomitant]
     Indication: TYPE 2 DIABETES MELLITUS
     Dosage: 1000 MG, 3X/DAY
     Route: 048
     Dates: start: 20030101
  5. TORSEMIDE [Concomitant]
     Indication: HYPERTENSION
     Dosage: 10 MG, 1X/DAY
     Route: 048
     Dates: start: 20030101
  6. IBUPROFEN [Concomitant]
     Indication: PSORIATIC ARTHROPATHY
     Dosage: 800 MG, 3X/DAY
     Route: 048
     Dates: start: 20101001
  7. CALCIVIT D [Concomitant]
     Indication: OSTEOPENIA
     Dosage: 1 TAB. PER DAY
     Route: 048
     Dates: start: 20030101
  8. NOVALGIN                           /06276704/ [Concomitant]
     Indication: PSORIATIC ARTHROPATHY
     Dosage: 20 GTT, 2X/DAY
     Route: 048
     Dates: start: 20101001
  9. RAMIPRIL [Concomitant]
     Indication: HYPERTENSION
     Dosage: 5 MG, 1X/DAY
     Route: 048
     Dates: start: 20030101

REACTIONS (1)
  - PEMPHIGOID [None]
